FAERS Safety Report 8544347-6 (Version None)
Quarter: 2012Q3

REPORT INFORMATION
  Report Type: 
  Country: None (occurrence: None)
  Receive Date: 20120717
  Receipt Date: 20120702
  Transmission Date: 20120928
  Serious: Yes (Other)
  Sender: FDA-Public Use
  Company Number: 2011MA002959

PATIENT
  Sex: Male

DRUGS (8)
  1. LEVOTHYROXINE SODIUM [Concomitant]
  2. HYDROMORPHINE [Concomitant]
  3. CYANOCOBALAMIN [Concomitant]
  4. CIPROFLAXACIN [Concomitant]
  5. CREON [Concomitant]
  6. CYMBALTA [Concomitant]
  7. METRONIDAZOLE [Concomitant]
  8. METOCLOPRAMIDE [Suspect]
     Dosage: 10 MG; PO
     Route: 048
     Dates: start: 20030601, end: 20110201

REACTIONS (10)
  - EMOTIONAL DISORDER [None]
  - DYSKINESIA [None]
  - INCORRECT DRUG ADMINISTRATION DURATION [None]
  - TARDIVE DYSKINESIA [None]
  - FAMILY STRESS [None]
  - EXTRAPYRAMIDAL DISORDER [None]
  - AKATHISIA [None]
  - ECONOMIC PROBLEM [None]
  - DYSTONIA [None]
  - TREMOR [None]
